FAERS Safety Report 8451215-7 (Version None)
Quarter: 2012Q2

REPORT INFORMATION
  Report Type: 
  Country: None (occurrence: None)
  Receive Date: 20120620
  Receipt Date: 20120229
  Transmission Date: 20120825
  Serious: No
  Sender: FDA-Public Use
  Company Number: US-VERTEX PHARMACEUTICALS INC.-AE-2011-005642

PATIENT
  Sex: Male
  Weight: 83.99 kg

DRUGS (3)
  1. INCIVEK [Suspect]
     Indication: HEPATITIS C
     Route: 048
     Dates: start: 20111224
  2. RIBAVIRIN [Concomitant]
     Indication: HEPATITIS C
     Dates: start: 20111224
  3. PEGASYS [Concomitant]
     Indication: HEPATITIS C
     Route: 058
     Dates: start: 20111224

REACTIONS (6)
  - ANAL HAEMORRHAGE [None]
  - ANORECTAL DISCOMFORT [None]
  - RASH [None]
  - DIARRHOEA [None]
  - FAECAL INCONTINENCE [None]
  - ANAL PRURITUS [None]
